FAERS Safety Report 7751465-9 (Version None)
Quarter: 2011Q3

REPORT INFORMATION
  Report Type: 
  Country: None (occurrence: None)
  Receive Date: 20110914
  Receipt Date: 20110906
  Transmission Date: 20111222
  Serious: Yes (Other)
  Sender: FDA-Public Use
  Company Number: PHEH2011US03412

PATIENT
  Sex: Female

DRUGS (9)
  1. EXELON [Suspect]
     Dosage: 9.5 MG , 1 PATCH PER DAY
     Route: 062
  2. LEVOXYL [Concomitant]
     Indication: THYROID DISORDER
     Dosage: UNK UKN, UNK
  3. PRAVASTATIN [Concomitant]
     Indication: OSTEOPOROSIS
     Dosage: UNK UKN, UNK
  4. FLUOXETINE [Concomitant]
     Dosage: UNK UKN, UNK
  5. ATIVAN [Concomitant]
     Dosage: UNK UKN, UNK
  6. ALENDRONATE SODIUM [Concomitant]
     Indication: OSTEOPOROSIS
     Dosage: 1 DF PER WEEK
  7. EXELON [Suspect]
     Dosage: 4.6 MG, UNK
     Route: 062
  8. LORAZEPAM [Concomitant]
     Indication: ANXIETY
     Dosage: UNK UKN, UNK
  9. LAMOTRIGINE [Concomitant]
     Indication: CONVULSION
     Dosage: UNK UKN, UNK

REACTIONS (11)
  - ANXIETY [None]
  - DRUG INEFFECTIVE [None]
  - DEMENTIA [None]
  - MEMORY IMPAIRMENT [None]
  - ACTIVITIES OF DAILY LIVING IMPAIRED [None]
  - APPLICATION SITE HYPERSENSITIVITY [None]
  - WRONG TECHNIQUE IN DRUG USAGE PROCESS [None]
  - APPLICATION SITE PRURITUS [None]
  - CONVULSION [None]
  - PRODUCT ADHESION ISSUE [None]
  - APPLICATION SITE ERYTHEMA [None]
